FAERS Safety Report 4313335-8 (Version None)
Quarter: 2004Q1

REPORT INFORMATION
  Report Type: 
  Country: None (occurrence: None)
  Receive Date: 20040304
  Receipt Date: 20030811
  Transmission Date: 20041129
  Serious: Yes (Death)
  Sender: FDA-Public Use
  Company Number: BE-JNJFOC-20040300285

PATIENT
  Age: 73 Year
  Sex: Male

DRUGS (1)
  1. CISAPRIDE (CISAPRIDE) TABLETS [Suspect]
     Indication: IMPAIRED GASTRIC EMPTYING
     Dosage: 10 MG, 3 IN 1 DAY, UNKNOWN
     Dates: start: 20030226

REACTIONS (1)
  - SURGERY [None]
